FAERS Safety Report 4530020-8 (Version None)
Quarter: 2004Q4

REPORT INFORMATION
  Report Type: 
  Country: None (occurrence: None)
  Receive Date: 20041214
  Receipt Date: 20041203
  Transmission Date: 20050328
  Serious: Yes (Death, Hospitalization)
  Sender: FDA-Public Use
  Company Number: US-2004-034370

PATIENT
  Age: 79 Year
  Sex: Male

DRUGS (7)
  1. BETASERON [Suspect]
     Indication: PROGRESSIVE MULTIPLE SCLEROSIS
     Dosage: 8 MIU, EVERY 2D, SUBCUTANEOUS
     Route: 058
     Dates: start: 20021203, end: 20040909
  2. AMANTADINE (AMANTADINE) [Concomitant]
  3. PROVIGIL [Concomitant]
  4. ASPIRIN (BABY) (ACETYLSALICYLIC ACID) [Concomitant]
  5. FLOMAX ^BOEHRINGER INGELHEIM^ (TAMSULOSIN HDYROCHLORIDE) [Concomitant]
  6. LEXAPRO [Concomitant]
  7. VITAMINS NOS (VITAMINS NOS) [Concomitant]

REACTIONS (3)
  - ABDOMINAL PAIN [None]
  - CARDIAC ARREST [None]
  - HAEMOLYTIC ANAEMIA [None]
